FAERS Safety Report 7011839-0 (Version None)
Quarter: 2010Q3

REPORT INFORMATION
  Report Type: 
  Country: None (occurrence: None)
  Receive Date: 20100923
  Receipt Date: 20090820
  Transmission Date: 20110219
  Serious: No
  Sender: FDA-Public Use
  Company Number: US-WYE-H10679709

PATIENT
  Age: 51 Year
  Sex: Female
  Weight: 60.84 kg

DRUGS (2)
  1. PREMARIN [Suspect]
     Indication: VAGINAL DISORDER
     Dosage: 0.5 G BIWEEKLY
     Route: 067
     Dates: start: 20060101, end: 20070901
  2. PREMARIN [Suspect]
     Indication: URETHRAL DISORDER
     Route: 067
     Dates: start: 20090601

REACTIONS (5)
  - GENITAL DISORDER FEMALE [None]
  - POSTMENOPAUSAL HAEMORRHAGE [None]
  - VAGINAL DISORDER [None]
  - VULVOVAGINAL BURNING SENSATION [None]
  - VULVOVAGINAL DISCOMFORT [None]
